FAERS Safety Report 19641028 (Version 1)
Quarter: 2021Q3

REPORT INFORMATION
  Report Type: Spontaneous
  Country: US (occurrence: US)
  Receive Date: 20210730
  Receipt Date: 20210730
  Transmission Date: 20211014
  Serious: No
  Sender: FDA-Public Use
  Company Number: US-009507513-2107USA001313

PATIENT
  Age: 34 Year
  Sex: Female

DRUGS (4)
  1. ALBUTEROL SULFATE. [Suspect]
     Active Substance: ALBUTEROL SULFATE
     Indication: WHEEZING
     Dosage: 2 PUFFS AS NEEDED
     Dates: start: 20210406, end: 20210501
  2. ALBUTEROL SULFATE. [Suspect]
     Active Substance: ALBUTEROL SULFATE
     Indication: HYPERSENSITIVITY
  3. ALBUTEROL SULFATE. [Suspect]
     Active Substance: ALBUTEROL SULFATE
     Indication: WHEEZING
     Dosage: 2 PUFFS AS NEEDED
     Dates: start: 2021, end: 2021
  4. ALBUTEROL SULFATE. [Suspect]
     Active Substance: ALBUTEROL SULFATE
     Indication: HYPERSENSITIVITY

REACTIONS (6)
  - Drug effect less than expected [Unknown]
  - Product substitution issue [Unknown]
  - Product prescribing issue [Unknown]
  - Product use complaint [Unknown]
  - Product delivery mechanism issue [Unknown]
  - Drug dose omission by device [Unknown]

NARRATIVE: CASE EVENT DATE: 2021
